FAERS Safety Report 6168185-7 (Version None)
Quarter: 2009Q2

REPORT INFORMATION
  Report Type: 
  Country: None (occurrence: None)
  Receive Date: 20090427
  Receipt Date: 20090421
  Transmission Date: 20091009
  Serious: Yes (Hospitalization)
  Sender: FDA-Public Use
  Company Number: PHHY2009DE03064

PATIENT
  Sex: Female
  Weight: 71 kg

DRUGS (1)
  1. ACLASTA [Suspect]
     Indication: OSTEOPOROSIS
     Dosage: ONCE YEARLY
     Route: 042
     Dates: start: 20081111, end: 20081111

REACTIONS (4)
  - CARDIOVASCULAR DISORDER [None]
  - CHILLS [None]
  - DIZZINESS [None]
  - PYREXIA [None]
